FAERS Safety Report 21875263 (Version 1)
Quarter: 2023Q1

REPORT INFORMATION
  Report Type: Spontaneous
  Country: US (occurrence: US)
  Receive Date: 20230117
  Receipt Date: 20230117
  Transmission Date: 20230417
  Serious: Yes (Other)
  Sender: FDA-Public Use
  Company Number: US-BRISTOL-MYERS SQUIBB COMPANY-2023-007222

PATIENT
  Age: 75 Year
  Sex: Female
  Weight: 116 kg

DRUGS (1)
  1. REVLIMID [Suspect]
     Active Substance: LENALIDOMIDE
     Indication: Plasma cell myeloma
     Dosage: FREQUENCY- 21D ON 7D OFF
     Route: 048
     Dates: start: 20221001

REACTIONS (1)
  - Pneumonia [Recovered/Resolved]
